FAERS Safety Report 6223659-5 (Version None)
Quarter: 2009Q2

REPORT INFORMATION
  Report Type: 
  Country: None (occurrence: None)
  Receive Date: 20090611
  Receipt Date: 20090306
  Transmission Date: 20091009
  Serious: No
  Sender: FDA-Public Use
  Company Number: US-ABBOTT-08P-163-0466566-00

PATIENT
  Sex: Male
  Weight: 107.6 kg

DRUGS (13)
  1. HUMIRA [Suspect]
     Indication: RHEUMATOID ARTHRITIS
     Route: 058
     Dates: start: 20080101
  2. METHOTREXATE [Concomitant]
     Indication: RHEUMATOID ARTHRITIS
  3. PREDNISONE [Concomitant]
     Indication: RHEUMATOID ARTHRITIS
  4. PRILOSEC [Concomitant]
     Indication: PROPHYLAXIS AGAINST GASTROINTESTINAL ULCER
  5. FLEXERIL [Concomitant]
     Indication: NECK PAIN
  6. ELAVIL [Concomitant]
     Indication: DRUG USE FOR UNKNOWN INDICATION
  7. FOLIC ACID [Concomitant]
     Indication: RHEUMATOID ARTHRITIS
  8. FERROUS SULFATE TAB [Concomitant]
     Indication: ANAEMIA
     Dates: start: 20080101
  9. NORCO [Concomitant]
     Indication: PAIN
     Dosage: 10/325 MG
  10. LYRICA [Concomitant]
     Indication: NEURALGIA
  11. PLAQUENIL [Concomitant]
     Indication: RHEUMATOID ARTHRITIS
     Dates: start: 20070101
  12. LUNESTA [Concomitant]
     Indication: INSOMNIA
  13. OXYCONTIN [Concomitant]
     Indication: PAIN

REACTIONS (6)
  - BLISTER [None]
  - FEELING HOT [None]
  - INJECTION SITE PARAESTHESIA [None]
  - OEDEMA PERIPHERAL [None]
  - PAIN IN EXTREMITY [None]
  - PARAESTHESIA [None]
